FAERS Safety Report 4539378-7 (Version None)
Quarter: 2004Q4

REPORT INFORMATION
  Report Type: 
  Country: None (occurrence: None)
  Receive Date: 20041222
  Receipt Date: 20041209
  Transmission Date: 20050328
  Serious: Yes (Life-Threatening, Hospitalization)
  Sender: FDA-Public Use
  Company Number: RS004851-CDN

PATIENT
  Age: 44 Year
  Sex: Female
  Weight: 44.5 kg

DRUGS (7)
  1. RABEPRAZOLE SODIUM [Suspect]
     Dosage: 20 MG, ORAL
     Route: 048
     Dates: start: 20041118, end: 20041120
  2. TEGRETOL [Suspect]
     Indication: CONVULSION
     Dosage: 600 MG, 3 IN 1 D, ORAL
     Route: 048
  3. ANDRIOL          (TESTOSTERONE UNDECANOATE) [Concomitant]
  4. OGEN [Concomitant]
  5. DIAZEPAM [Concomitant]
  6. IMOVANE (ZOPICLONE) [Concomitant]
  7. DEMEROL [Concomitant]

REACTIONS (5)
  - DEHYDRATION [None]
  - DRUG TOXICITY [None]
  - FALL [None]
  - LOSS OF CONSCIOUSNESS [None]
  - VOMITING [None]
